FAERS Safety Report 25373328 (Version 3)
Quarter: 2025Q3

REPORT INFORMATION
  Report Type: Report from Study
  Country: EU (occurrence: EU)
  Receive Date: 20250529
  Receipt Date: 20250901
  Transmission Date: 20251020
  Serious: Yes (Death)
  Sender: CELLTRION
  Company Number: EU-CELLTRION INC.-2023RO021058

PATIENT

DRUGS (11)
  1. BEVACIZUMAB [Suspect]
     Active Substance: BEVACIZUMAB
     Indication: Hepatocellular carcinoma
     Dates: start: 20221111
  2. ATEZOLIZUMAB [Suspect]
     Active Substance: ATEZOLIZUMAB
     Indication: Hepatocellular carcinoma
     Route: 042
     Dates: start: 20221111
  3. OXYBUTYNIN [Concomitant]
     Active Substance: OXYBUTYNIN
     Dates: end: 20241121
  4. TAMSULOSIN HYDROCHLORIDE [Concomitant]
     Active Substance: TAMSULOSIN HYDROCHLORIDE
     Dates: end: 20241121
  5. BISOPROLOL FUMARATE [Concomitant]
     Active Substance: BISOPROLOL FUMARATE
     Dates: end: 20241121
  6. PERINDOPRIL [Concomitant]
     Active Substance: PERINDOPRIL
     Dates: start: 20230201, end: 20241121
  7. ENTECAVIR [Concomitant]
     Active Substance: ENTECAVIR
     Dates: end: 20241121
  8. DIETARY SUPPLEMENT\HERBALS\MILK THISTLE [Concomitant]
     Active Substance: MILK THISTLE
     Dates: end: 20241121
  9. BETAHISTINE [Concomitant]
     Active Substance: BETAHISTINE
     Dates: end: 20241121
  10. URSODIOL [Concomitant]
     Active Substance: URSODIOL
     Dates: end: 20241121
  11. SPIRONOLACTONE [Concomitant]
     Active Substance: SPIRONOLACTONE
     Dates: end: 20241121

REACTIONS (3)
  - Death [Fatal]
  - Prurigo [Recovered/Resolved with Sequelae]
  - Intentional product use issue [Unknown]

NARRATIVE: CASE EVENT DATE: 20230901
